FAERS Safety Report 21544228 (Version 4)
Quarter: 2023Q2

REPORT INFORMATION
  Report Type: Spontaneous
  Country: US (occurrence: US)
  Receive Date: 20221102
  Receipt Date: 20230630
  Transmission Date: 20230722
  Serious: Yes (Death, Hospitalization, Other)
  Sender: FDA-Public Use
  Company Number: US-TEVA-2022-US-2822626

PATIENT
  Age: 79 Year
  Sex: Male
  Weight: 85.04 kg

DRUGS (26)
  1. HYDROCHLOROTHIAZIDE\VALSARTAN [Suspect]
     Active Substance: HYDROCHLOROTHIAZIDE\VALSARTAN
     Indication: Blood pressure increased
     Dosage: 320/25MG
     Route: 065
     Dates: start: 20121002, end: 20131024
  2. HYDROCHLOROTHIAZIDE\VALSARTAN [Suspect]
     Active Substance: HYDROCHLOROTHIAZIDE\VALSARTAN
     Dosage: 320/25MG
     Route: 065
     Dates: start: 20131025, end: 20140123
  3. HYDROCHLOROTHIAZIDE\VALSARTAN [Suspect]
     Active Substance: HYDROCHLOROTHIAZIDE\VALSARTAN
     Dosage: 320/25MG
     Route: 065
     Dates: start: 20131031, end: 20140129
  4. HYDROCHLOROTHIAZIDE\VALSARTAN [Suspect]
     Active Substance: HYDROCHLOROTHIAZIDE\VALSARTAN
     Dosage: 320/25MG
     Route: 065
     Dates: start: 20140129, end: 20140403
  5. VALSARTAN [Suspect]
     Active Substance: VALSARTAN
     Indication: Blood pressure increased
     Route: 065
     Dates: start: 20200618, end: 20200916
  6. HYDROCHLOROTHIAZIDE\LOSARTAN POTASSIUM [Suspect]
     Active Substance: HYDROCHLOROTHIAZIDE\LOSARTAN POTASSIUM
     Indication: Blood pressure increased
     Dosage: 100/25MG
     Route: 065
     Dates: start: 20140120, end: 20140420
  7. HYDROCHLOROTHIAZIDE\VALSARTAN [Suspect]
     Active Substance: HYDROCHLOROTHIAZIDE\VALSARTAN
     Indication: Blood pressure increased
     Dosage: 320/25MG
     Route: 065
     Dates: start: 20140703, end: 20150125
  8. HYDROCHLOROTHIAZIDE\VALSARTAN [Suspect]
     Active Substance: HYDROCHLOROTHIAZIDE\VALSARTAN
     Indication: Blood pressure increased
     Dosage: 320/25MG
     Route: 065
     Dates: start: 20160822, end: 20180604
  9. HYDROCHLOROTHIAZIDE\VALSARTAN [Suspect]
     Active Substance: HYDROCHLOROTHIAZIDE\VALSARTAN
     Indication: Blood pressure increased
     Dosage: 320/25MG
     Route: 065
     Dates: start: 20181231, end: 20191103
  10. HYDROCHLOROTHIAZIDE\VALSARTAN [Suspect]
     Active Substance: HYDROCHLOROTHIAZIDE\VALSARTAN
     Indication: Blood pressure increased
     Dosage: 320/25MG
     Route: 065
     Dates: start: 20150114, end: 20160518
  11. HYDROCHLOROTHIAZIDE\VALSARTAN [Suspect]
     Active Substance: HYDROCHLOROTHIAZIDE\VALSARTAN
     Dosage: 320/25MG
     Route: 065
     Dates: start: 20160518, end: 20160717
  12. HYDROCHLOROTHIAZIDE\VALSARTAN [Suspect]
     Active Substance: HYDROCHLOROTHIAZIDE\VALSARTAN
     Dosage: 320/25MG
     Route: 065
     Dates: start: 20160722, end: 20160821
  13. HYDROCHLOROTHIAZIDE\VALSARTAN [Suspect]
     Active Substance: HYDROCHLOROTHIAZIDE\VALSARTAN
     Dosage: 320/25MG
     Route: 065
     Dates: start: 20180517, end: 20190123
  14. DIOVAN HCT [Suspect]
     Active Substance: HYDROCHLOROTHIAZIDE\VALSARTAN
     Indication: Blood pressure increased
     Dosage: 320/25MG
     Route: 065
     Dates: start: 20120304, end: 20120929
  15. DIOVAN HCT [Suspect]
     Active Substance: HYDROCHLOROTHIAZIDE\VALSARTAN
     Dosage: 320/25MG
     Route: 065
     Dates: start: 20200115, end: 20200902
  16. DIOVAN [Suspect]
     Active Substance: VALSARTAN
     Indication: Blood pressure increased
     Dosage: 320 MILLIGRAM DAILY;
     Route: 048
     Dates: start: 20200904, end: 20211223
  17. MOTRIN [Concomitant]
     Active Substance: IBUPROFEN
     Indication: Back pain
     Dosage: 3200 MILLIGRAM DAILY; IF NEEDED
     Route: 048
     Dates: start: 2019, end: 2022
  18. ZYLOPRIM [Concomitant]
     Active Substance: ALLOPURINOL
     Indication: Gout
     Dosage: 300 MILLIGRAM DAILY;
     Route: 048
  19. FISH OIL [Concomitant]
     Active Substance: FISH OIL
     Indication: Product used for unknown indication
     Dosage: 2000 MILLIGRAM DAILY;
     Route: 048
     Dates: start: 2018, end: 2021
  20. VITAMIN D3 [Concomitant]
     Active Substance: CHOLECALCIFEROL
     Indication: Product used for unknown indication
     Route: 048
     Dates: start: 2021, end: 2022
  21. Cyanocobalamin (vitamin B12) [Concomitant]
     Indication: Product used for unknown indication
     Route: 060
     Dates: start: 2021, end: 2022
  22. TOPROL XL [Concomitant]
     Active Substance: METOPROLOL SUCCINATE
     Indication: Product used for unknown indication
     Dosage: 24HR TABLET, DO NOT CRUSH OR CHEW
     Route: 048
     Dates: end: 2022
  23. PROTONIX [Concomitant]
     Active Substance: PANTOPRAZOLE SODIUM
     Indication: Product used for unknown indication
     Dosage: EC TABLET, BEFORE BREAKFAST. DO NOT CRUSH OR CHEW OR SPLIT.
     Route: 048
     Dates: end: 2022
  24. FLOMAX [Concomitant]
     Active Substance: TAMSULOSIN HYDROCHLORIDE
     Indication: Product used for unknown indication
     Dosage: 24HR CAPSULE
     Route: 048
     Dates: end: 2022
  25. ZINC ORAL [Concomitant]
     Indication: Product used for unknown indication
     Route: 048
  26. ZINC ORAL [Concomitant]
     Dosage: CHELATED
     Route: 048
     Dates: end: 2022

REACTIONS (11)
  - Pneumonia [Fatal]
  - Cardio-respiratory arrest [Fatal]
  - Pancytopenia [Fatal]
  - Oesophageal squamous cell carcinoma stage IV [Fatal]
  - Metastases to liver [Fatal]
  - Metastases to abdominal wall [Unknown]
  - Metastases to pelvis [Unknown]
  - Dysphagia [Unknown]
  - Odynophagia [Unknown]
  - Decreased appetite [Unknown]
  - Hepatic function abnormal [Unknown]

NARRATIVE: CASE EVENT DATE: 20210901
